FAERS Safety Report 11713098 (Version 2)
Quarter: 2015Q4

REPORT INFORMATION
  Report Type: Spontaneous
  Country: IN (occurrence: IN)
  Receive Date: 20151109
  Receipt Date: 20151119
  Transmission Date: 20160304
  Serious: Yes (Hospitalization, Other)
  Sender: FDA-Public Use
  Company Number: IN-CIPLA LTD.-2015IN08509

PATIENT

DRUGS (1)
  1. VIRADAY [Suspect]
     Active Substance: EFAVIRENZ\EMTRICITABINE\TENOFOVIR DISOPROXIL FUMARATE
     Indication: HIV INFECTION
     Dosage: UNK, QD
     Route: 048
     Dates: start: 201506

REACTIONS (5)
  - CD4 lymphocytes decreased [Unknown]
  - Drug ineffective [Unknown]
  - Pyrexia [Unknown]
  - Viral load increased [Unknown]
  - Diarrhoea [Unknown]
